FAERS Safety Report 6786316-2 (Version None)
Quarter: 2010Q2

REPORT INFORMATION
  Report Type: 
  Country: None (occurrence: None)
  Receive Date: 20100623
  Receipt Date: 20100615
  Transmission Date: 20101027
  Serious: Yes (Hospitalization)
  Sender: FDA-Public Use
  Company Number: GXKR2010CH06677

PATIENT
  Age: 42 Year
  Sex: Male

DRUGS (5)
  1. RIFAMPIN AND ISONIAZID [Suspect]
     Indication: DISSEMINATED TUBERCULOSIS
     Dosage: 150 MG, 5QD
     Route: 048
     Dates: start: 20100317, end: 20100518
  2. JANUVIA [Suspect]
     Indication: TYPE 2 DIABETES MELLITUS
     Dosage: 25 MG/DAY
     Route: 048
     Dates: start: 20100401, end: 20100520
  3. NEXIUM [Suspect]
     Indication: DUODENAL ULCER
     Dosage: 40 MG/DAY
     Route: 048
  4. PREDNISONE [Concomitant]
     Indication: KIDNEY TRANSPLANT REJECTION
  5. TORSEMIDE [Concomitant]
     Dosage: 100 MG, UNK
     Route: 065

REACTIONS (6)
  - CATHETER PLACEMENT [None]
  - ELECTROLYTE IMBALANCE [None]
  - HAEMODIALYSIS [None]
  - HYPERKALAEMIA [None]
  - METABOLIC ACIDOSIS [None]
  - RENAL FAILURE ACUTE [None]
